FAERS Safety Report 20389649 (Version 3)
Quarter: 2022Q1

REPORT INFORMATION
  Report Type: Spontaneous
  Country: ES (occurrence: ES)
  Receive Date: 20220128
  Receipt Date: 20220211
  Transmission Date: 20220424
  Serious: Yes (Other)
  Sender: FDA-Public Use
  Company Number: ES-009507513-2201ESP007883

PATIENT
  Age: 40 Year
  Sex: Male

DRUGS (2)
  1. LETERMOVIR [Interacting]
     Active Substance: LETERMOVIR
     Indication: Antiviral prophylaxis
     Dosage: 240 MILLIGRAM, ON DAY +7
     Route: 048
  2. CYCLOSPORINE [Interacting]
     Active Substance: CYCLOSPORINE
     Indication: Immunosuppressant drug therapy
     Dosage: ON DAY +7

REACTIONS (5)
  - Hepatic failure [Unknown]
  - Haemoperitoneum [Unknown]
  - Renal failure [Unknown]
  - Blood stem cell transplant failure [Recovered/Resolved]
  - Drug interaction [Unknown]
